FAERS Safety Report 8885641 (Version 1)
Quarter: 2012Q4

REPORT INFORMATION
  Report Type: 
  Country: US (occurrence: US)
  Receive Date: 20121101
  Receipt Date: 20121101
  Transmission Date: 20130627
  Serious: No
  Sender: FDA-Public Use
  Company Number: US-PFIZER INC-2012268480

PATIENT
  Age: 57 Year
  Sex: Male
  Weight: 90.7 kg

DRUGS (5)
  1. VIAGRA [Suspect]
     Indication: ERECTILE DYSFUNCTION
     Dosage: 100 mg, as needed
     Route: 048
  2. ATENOLOL [Concomitant]
     Indication: BLOOD PRESSURE HIGH
     Dosage: UNK
  3. CARDIZEM [Concomitant]
     Dosage: 180 mg, UNK
  4. WARFARIN [Concomitant]
     Dosage: UNK
  5. LIPITOR [Concomitant]
     Indication: HIGH CHOLESTEROL
     Dosage: UNK

REACTIONS (5)
  - Promotion of peripheral circulation [Unknown]
  - Energy increased [Unknown]
  - Therapeutic response unexpected [Unknown]
  - Fatigue [Unknown]
  - Depressed mood [Unknown]
